FAERS Safety Report 5266625-9 (Version None)
Quarter: 2007Q1

REPORT INFORMATION
  Report Type: 
  Country: None (occurrence: None)
  Receive Date: 20070312
  Receipt Date: 20070227
  Transmission Date: 20070707
  Serious: Yes (Death)
  Sender: FDA-Public Use
  Company Number: 2006JP002682

PATIENT
  Age: 74 Year
  Sex: Female

DRUGS (16)
  1. TACROLIMUS CAPSULES(TACROLIMUS) CAPSULE [Suspect]
     Indication: RHEUMATOID ARTHRITIS
     Dosage: SEE IMAGE
     Route: 048
     Dates: start: 20060118, end: 20060131
  2. TACROLIMUS CAPSULES(TACROLIMUS) CAPSULE [Suspect]
     Indication: RHEUMATOID ARTHRITIS
     Dosage: SEE IMAGE
     Route: 048
     Dates: start: 20060201, end: 20060729
  3. METALCAPTASE CAPSULE [Concomitant]
  4. PREDNISOLONE [Concomitant]
  5. LOXONIN (LOXOPROFEN SODIUM) TABLET [Concomitant]
  6. CLINORIL (SULINDAC) TABLET [Concomitant]
  7. MUCOSTA (REBAMIPIDE) TABLET [Concomitant]
  8. AMARYL [Concomitant]
  9. PREDNISOLONE [Concomitant]
  10. PARIET (RABEPRAZOLE SODIUM) TABLET [Concomitant]
  11. CYTOTEC [Concomitant]
  12. BENET (RISEDRONATE SODIUM) TABLET [Concomitant]
  13. LANSOPRAZOLE [Concomitant]
  14. GASMOTIN (MOSAPRIDE CITRATE) TABLET [Concomitant]
  15. SALAZOSULFAPYRIDINE FORMULATION UNKNOWN [Concomitant]
  16. ETANERCEPT (ETANERCEPT) FORMULATION UNKNOWN [Concomitant]

REACTIONS (11)
  - BLOOD PRESSURE SYSTOLIC INCREASED [None]
  - CONDITION AGGRAVATED [None]
  - DIFFUSE ALVEOLAR DAMAGE [None]
  - FUNGAL INFECTION [None]
  - HEART RATE INCREASED [None]
  - INTERSTITIAL LUNG DISEASE [None]
  - LUNG DISORDER [None]
  - NO THERAPEUTIC RESPONSE [None]
  - PNEUMOCYSTIS JIROVECI INFECTION [None]
  - RENAL TUBULAR DISORDER [None]
  - TUBERCULOSIS [None]
